FAERS Safety Report 23735711 (Version 1)
Quarter: 2024Q2

REPORT INFORMATION
  Report Type: Spontaneous
  Country: US (occurrence: None)
  Receive Date: 20240411
  Receipt Date: 20240411
  Transmission Date: 20240716
  Serious: No
  Sender: FDA-Public Use
  Company Number: None

PATIENT
  Age: 88 Year
  Sex: Male

DRUGS (1)
  1. JAKAFI [Suspect]
     Active Substance: RUXOLITINIB
     Indication: Product used for unknown indication
     Dates: start: 20240320, end: 20240322

REACTIONS (3)
  - Angina pectoris [None]
  - Gait disturbance [None]
  - Head discomfort [None]

NARRATIVE: CASE EVENT DATE: 20240322
